FAERS Safety Report 14613256 (Version 1)
Quarter: 2018Q1

REPORT INFORMATION
  Report Type: Spontaneous
  Country: US (occurrence: US)
  Receive Date: 20180308
  Receipt Date: 20180308
  Transmission Date: 20180509
  Serious: Yes (Other)
  Sender: FDA-Public Use
  Company Number: None

PATIENT
  Age: 61 Year
  Sex: Male

DRUGS (1)
  1. COPAXONE [Suspect]
     Active Substance: GLATIRAMER ACETATE

REACTIONS (5)
  - Anal incontinence [None]
  - Vomiting [None]
  - Flushing [None]
  - Movement disorder [None]
  - Hyperhidrosis [None]

NARRATIVE: CASE EVENT DATE: 20180303
